FAERS Safety Report 5400887-X (Version None)
Quarter: 2007Q3

REPORT INFORMATION
  Report Type: 
  Country: None (occurrence: None)
  Receive Date: 20070730
  Receipt Date: 20070530
  Transmission Date: 20080115
  Serious: No
  Sender: FDA-Public Use
  Company Number: A0653482A

PATIENT
  Age: 24 Year
  Sex: Female

DRUGS (1)
  1. IMITREX [Suspect]
     Indication: MIGRAINE
     Dosage: 100MG AS REQUIRED
     Route: 048
     Dates: start: 20070315

REACTIONS (4)
  - DYSGEUSIA [None]
  - MUSCLE TIGHTNESS [None]
  - NAUSEA [None]
  - PARAESTHESIA ORAL [None]
